FAERS Safety Report 9776400 (Version 1)
Quarter: 2013Q4

REPORT INFORMATION
  Report Type: Spontaneous
  Country: DE (occurrence: DE)
  Receive Date: 20131220
  Receipt Date: 20131220
  Transmission Date: 20140711
  Serious: Yes (Death, Hospitalization)
  Sender: FDA-Public Use
  Company Number: DE-MYLANLABS-2013S1027990

PATIENT
  Age: 11 Year
  Sex: Male

DRUGS (6)
  1. NELARABINE [Suspect]
     Indication: T-CELL TYPE ACUTE LEUKAEMIA
     Route: 065
  2. METHOTREXATE [Suspect]
     Indication: T-CELL TYPE ACUTE LEUKAEMIA
     Dosage: ONE DOSE
     Route: 037
  3. CYCLOPHOSPHAMIDE [Concomitant]
     Indication: T-CELL TYPE ACUTE LEUKAEMIA
     Route: 065
  4. ETOPOSIDE [Concomitant]
     Indication: T-CELL TYPE ACUTE LEUKAEMIA
     Route: 065
  5. CYTARABINE [Concomitant]
     Indication: T-CELL TYPE ACUTE LEUKAEMIA
     Dosage: ONE DOSE
     Route: 037
  6. PREDNISOLONE [Concomitant]
     Indication: T-CELL TYPE ACUTE LEUKAEMIA
     Dosage: ONE DOSE
     Route: 037

REACTIONS (7)
  - Central nervous system necrosis [Fatal]
  - Grand mal convulsion [Fatal]
  - Partial seizures [Fatal]
  - Epilepsy [Fatal]
  - Guillain-Barre syndrome [Fatal]
  - Aspiration [Unknown]
  - Neurological symptom [Fatal]
